FAERS Safety Report 17704645 (Version 1)
Quarter: 2020Q2

REPORT INFORMATION
  Report Type: Spontaneous
  Country: US (occurrence: US)
  Receive Date: 20200424
  Receipt Date: 20200424
  Transmission Date: 20200714
  Serious: No
  Sender: FDA-Public Use
  Company Number: None

PATIENT
  Age: 60 Year
  Sex: Male
  Weight: 58.5 kg

DRUGS (3)
  1. XANAX [Suspect]
     Active Substance: ALPRAZOLAM
     Indication: PANIC ATTACK
     Route: 048
  2. XANAX [Suspect]
     Active Substance: ALPRAZOLAM
     Indication: ANXIETY
     Route: 048
  3. TYLENOL [Concomitant]
     Active Substance: ACETAMINOPHEN

REACTIONS (11)
  - Visual impairment [None]
  - Dry mouth [None]
  - Dysphagia [None]
  - Impaired work ability [None]
  - Headache [None]
  - Nightmare [None]
  - Cold sweat [None]
  - Abdominal distension [None]
  - Decreased appetite [None]
  - Cerebral disorder [None]
  - Thinking abnormal [None]
